FAERS Safety Report 20467541 (Version 1)
Quarter: 2022Q1

REPORT INFORMATION
  Report Type: Spontaneous
  Country: CN (occurrence: CN)
  Receive Date: 20220214
  Receipt Date: 20220214
  Transmission Date: 20220423
  Serious: Yes (Hospitalization)
  Sender: FDA-Public Use
  Company Number: CN-ORGANON-O2202CHN000916

PATIENT
  Age: 77 Year
  Sex: Female

DRUGS (1)
  1. FOSAMAX [Suspect]
     Active Substance: ALENDRONATE SODIUM
     Indication: Osteoporosis
     Dosage: 70MG, QW
     Route: 048
     Dates: start: 20210607, end: 20220124

REACTIONS (1)
  - Alveolar osteitis [Recovering/Resolving]

NARRATIVE: CASE EVENT DATE: 20220121
